FAERS Safety Report 17338047 (Version 1)
Quarter: 2020Q1

REPORT INFORMATION
  Report Type: Spontaneous
  Country: US (occurrence: US)
  Receive Date: 20200129
  Receipt Date: 20200129
  Transmission Date: 20200409
  Serious: Yes (Death, Hospitalization)
  Sender: FDA-Public Use
  Company Number: US-ALVOGEN-2020-ALVOGEN-102475

PATIENT
  Age: 29 Year
  Sex: Male

DRUGS (5)
  1. HYDROXYZINE [Suspect]
     Active Substance: HYDROXYZINE HYDROCHLORIDE
     Indication: SUICIDE ATTEMPT
     Dosage: ROUTE: INGESTION
     Route: 048
  2. ETHYLENE GLYCOL [Suspect]
     Active Substance: ETHYLENE GLYCOL
     Indication: SUICIDE ATTEMPT
     Dosage: ROUTE: INGESTION
     Route: 048
  3. ZIPRASIDONE. [Suspect]
     Active Substance: ZIPRASIDONE
     Indication: SUICIDE ATTEMPT
     Dosage: ROUTE: INGESTION
     Route: 048
  4. FLUOXETINE [Suspect]
     Active Substance: FLUOXETINE HYDROCHLORIDE
     Indication: SUICIDE ATTEMPT
     Dosage: ROUTE: INGESTION
     Route: 048
  5. TRAZODONE [Suspect]
     Active Substance: TRAZODONE HYDROCHLORIDE
     Indication: SUICIDE ATTEMPT
     Dosage: ROUTE: INGESTION
     Route: 048

REACTIONS (1)
  - Completed suicide [Fatal]
